FAERS Safety Report 8838992 (Version 1)
Quarter: 2012Q4

REPORT INFORMATION
  Report Type: Spontaneous
  Country: US (occurrence: None)
  Receive Date: 20121011
  Receipt Date: 20121011
  Transmission Date: 20130627
  Serious: Yes (Hospitalization)
  Sender: FDA-Public Use
  Company Number: None

PATIENT
  Age: 43 Year
  Sex: Female
  Weight: 115 kg

DRUGS (11)
  1. DOXORUBICIN [Suspect]
     Indication: BREAST CANCER
     Route: 042
     Dates: start: 20120827, end: 20120910
  2. CYCLOPHOSPHAMIDE [Suspect]
     Route: 042
     Dates: start: 20120827, end: 20120910
  3. DIVALPROEX SODIUM [Concomitant]
  4. FLUOXETINE [Concomitant]
  5. GLIMEPIRIDE [Concomitant]
  6. IBUPROFEN [Concomitant]
  7. LISINOPRIL [Concomitant]
  8. METFORMIN [Concomitant]
  9. POTASSIUM CHLORIDE [Concomitant]
  10. CRESTOR [Concomitant]
  11. DETROL [Concomitant]

REACTIONS (9)
  - Otitis media [None]
  - Otitis externa [None]
  - Lactic acidosis [None]
  - Anaemia [None]
  - Thrombocytopenia [None]
  - Myalgia [None]
  - Febrile neutropenia [None]
  - Oropharyngeal pain [None]
  - Sick relative [None]
